FAERS Safety Report 22168383 (Version 1)
Quarter: 2023Q2

REPORT INFORMATION
  Report Type: Spontaneous
  Country: US (occurrence: US)
  Receive Date: 20230403
  Receipt Date: 20230403
  Transmission Date: 20230721
  Serious: No
  Sender: FDA-Public Use
  Company Number: US-TG THERAPEUTICS INC.-TGT002738

PATIENT
  Sex: Female

DRUGS (1)
  1. BRIUMVI [Suspect]
     Active Substance: UBLITUXIMAB-XIIY
     Indication: Product used for unknown indication
     Dosage: UNK
     Route: 042
     Dates: start: 20230303

REACTIONS (5)
  - Alopecia [Unknown]
  - Dry mouth [Unknown]
  - Infusion related reaction [Unknown]
  - Pyrexia [Unknown]
  - Therapeutic response unexpected [Unknown]
